FAERS Safety Report 5033910-5 (Version None)
Quarter: 2006Q2

REPORT INFORMATION
  Report Type: 
  Country: None (occurrence: None)
  Receive Date: 20060623
  Receipt Date: 20060614
  Transmission Date: 20061013
  Serious: Yes (Hospitalization, Other)
  Sender: FDA-Public Use
  Company Number: AR-ABBOTT-06P-007-0336253-00

PATIENT
  Age: 26 Year
  Sex: Male

DRUGS (2)
  1. SEVORANE LIQUID FOR INHALATION [Suspect]
     Indication: ANAESTHESIA
     Route: 055
     Dates: start: 20060601, end: 20060601
  2. FORANE LIQUID FOR INHALATION [Suspect]
     Indication: ANAESTHESIA
     Route: 055
     Dates: start: 20060601, end: 20060601

REACTIONS (3)
  - COUGH [None]
  - CYANOSIS [None]
  - HAEMOPTYSIS [None]
